FAERS Safety Report 19868840 (Version 2)
Quarter: 2021Q3

REPORT INFORMATION
  Report Type: Report from Study
  Country: US (occurrence: US)
  Receive Date: 20210922
  Receipt Date: 20210930
  Transmission Date: 20211014
  Serious: Yes (Hospitalization)
  Sender: FDA-Public Use
  Company Number: US-GILEAD-2021-0543862

PATIENT
  Age: 63 Year
  Sex: Female
  Weight: 64.08 kg

DRUGS (11)
  1. TYVASO [Suspect]
     Active Substance: TREPROSTINIL
     Dosage: 18?54 UG, QID
     Route: 055
     Dates: start: 202108, end: 202108
  2. LASIX + K [Concomitant]
     Active Substance: FUROSEMIDE\POTASSIUM CHLORIDE
  3. TYVASO [Suspect]
     Active Substance: TREPROSTINIL
     Dosage: 18?54 UG, QID
     Route: 055
     Dates: start: 202108
  4. ATORVASTATIN [Concomitant]
     Active Substance: ATORVASTATIN
  5. LEFLUNOMIDE. [Concomitant]
     Active Substance: LEFLUNOMIDE
  6. AMBRISENTAN [Suspect]
     Active Substance: AMBRISENTAN
     Indication: PULMONARY ARTERIAL HYPERTENSION
     Dosage: 10 MG, QD
     Route: 065
     Dates: start: 20210714
  7. TYVASO [Suspect]
     Active Substance: TREPROSTINIL
     Indication: PULMONARY ARTERIAL HYPERTENSION
     Dosage: UNK
     Route: 055
     Dates: start: 20210811
  8. SILDENAFIL. [Concomitant]
     Active Substance: SILDENAFIL
  9. PREDNISONE. [Concomitant]
     Active Substance: PREDNISONE
  10. TYVASO [Suspect]
     Active Substance: TREPROSTINIL
     Dosage: 60?120 UG, QID
     Route: 055
     Dates: start: 202108, end: 202108
  11. DIGOXIN. [Concomitant]
     Active Substance: DIGOXIN

REACTIONS (9)
  - Headache [Unknown]
  - Weight decreased [Unknown]
  - Feeling abnormal [Not Recovered/Not Resolved]
  - COVID-19 [Unknown]
  - Nausea [Unknown]
  - Fluid overload [Unknown]
  - Dyspnoea [Unknown]
  - Vomiting [Not Recovered/Not Resolved]
  - Cough [Unknown]
